FAERS Safety Report 5803366-0 (Version None)
Quarter: 2008Q3

REPORT INFORMATION
  Report Type: 
  Country: None (occurrence: None)
  Receive Date: 20080708
  Receipt Date: 20080624
  Transmission Date: 20090109
  Serious: Yes (Hospitalization)
  Sender: FDA-Public Use
  Company Number: IT-BAUSCH-2008BL002883

PATIENT
  Age: 45 Year
  Sex: Male

DRUGS (1)
  1. NAPHAZOLINE HCL [Suspect]
     Indication: RHINITIS
     Route: 045

REACTIONS (2)
  - ISCHAEMIC STROKE [None]
  - MEDICATION ERROR [None]
